FAERS Safety Report 25900927 (Version 3)
Quarter: 2025Q4

REPORT INFORMATION
  Report Type: Spontaneous
  Country: EU (occurrence: EU)
  Receive Date: 20251009
  Receipt Date: 20251127
  Transmission Date: 20260118
  Serious: Yes (Death)
  Sender: AMGEN
  Company Number: EU-AMGEN-POLSP2025198447

PATIENT
  Age: 50 Year
  Sex: Male
  Weight: 65 kg

DRUGS (4)
  1. REPATHA [Suspect]
     Active Substance: EVOLOCUMAB
     Indication: Product used for unknown indication
     Dosage: UNK, (140)
     Route: 058
     Dates: start: 202208, end: 202407
  2. ASPIRIN [Concomitant]
     Active Substance: ASPIRIN
     Indication: Prophylaxis
     Dosage: 75 MILLIGRAM
     Route: 065
  3. ROSUVASTATIN [Concomitant]
     Active Substance: ROSUVASTATIN
     Dosage: UNK (40 UNITS)
     Route: 065
     Dates: start: 2022, end: 2024
  4. EZETIMIBE [Concomitant]
     Active Substance: EZETIMIBE
     Dosage: UNK (10 UNITS)
     Route: 065
     Dates: start: 2022, end: 2024

REACTIONS (1)
  - Lung neoplasm malignant [Fatal]

NARRATIVE: CASE EVENT DATE: 20231001
